FAERS Safety Report 5510297-2 (Version None)
Quarter: 2007Q4

REPORT INFORMATION
  Report Type: 
  Country: None (occurrence: None)
  Receive Date: 20071108
  Receipt Date: 20071102
  Transmission Date: 20080405
  Serious: Yes (Hospitalization)
  Sender: FDA-Public Use
  Company Number: ES-WYE-H01038507

PATIENT
  Age: 78 Year
  Sex: Female

DRUGS (6)
  1. TRANGOREX [Suspect]
     Indication: ATRIAL FIBRILLATION
     Route: 048
     Dates: start: 20060101
  2. CALCITRIOL [Concomitant]
     Indication: HYPOCALCAEMIA
     Route: 048
  3. LEVOTHROID [Interacting]
     Indication: HYPOTHYROIDISM
     Route: 048
     Dates: start: 19850101
  4. SANDIMMUNE [Concomitant]
     Indication: RENAL TRANSPLANT
     Route: 048
     Dates: start: 19910101
  5. ACENOCOUMAROL [Interacting]
     Indication: ATRIAL FIBRILLATION
     Route: 048
     Dates: start: 20050101
  6. SIMVASTATIN [Interacting]
     Indication: HYPERLIPIDAEMIA
     Route: 048
     Dates: start: 20050101

REACTIONS (2)
  - CEREBRAL HAEMATOMA [None]
  - DRUG INTERACTION [None]
